FAERS Safety Report 17328956 (Version 1)
Quarter: 2020Q1

REPORT INFORMATION
  Report Type: Spontaneous
  Country: PR (occurrence: PR)
  Receive Date: 20200127
  Receipt Date: 20200127
  Transmission Date: 20200409
  Serious: No
  Sender: FDA-Public Use
  Company Number: PR-ALEXION PHARMACEUTICALS INC.-A201918957

PATIENT
  Sex: Male

DRUGS (1)
  1. SOLIRIS [Suspect]
     Active Substance: ECULIZUMAB
     Indication: NEUROMYELITIS OPTICA SPECTRUM DISORDER
     Dosage: 900 MG, QW

REACTIONS (2)
  - Chest discomfort [Recovered/Resolved]
  - Chest pain [Recovered/Resolved]
